FAERS Safety Report 13321813 (Version 1)
Quarter: 2017Q1

REPORT INFORMATION
  Report Type: Spontaneous
  Country: FR (occurrence: FR)
  Receive Date: 20170310
  Receipt Date: 20170310
  Transmission Date: 20170428
  Serious: Yes (Other)
  Sender: FDA-Public Use
  Company Number: FR-TEVA-746226ROM

PATIENT
  Age: 67 Year
  Sex: Male

DRUGS (2)
  1. IBRUTINIB [Interacting]
     Active Substance: IBRUTINIB
     Indication: ISCHAEMIC NEUROPATHY
     Route: 065
     Dates: start: 20150421
  2. CARBAMAZEPINE. [Suspect]
     Active Substance: CARBAMAZEPINE
     Indication: ISCHAEMIC NEUROPATHY
     Route: 065

REACTIONS (3)
  - Disease progression [Unknown]
  - Drug interaction [Unknown]
  - Mantle cell lymphoma [Unknown]
